FAERS Safety Report 18990975 (Version 2)
Quarter: 2022Q2

REPORT INFORMATION
  Report Type: Spontaneous
  Country: CO (occurrence: CO)
  Receive Date: 20210310
  Receipt Date: 20220624
  Transmission Date: 20220721
  Serious: Yes (Other)
  Sender: FDA-Public Use
  Company Number: CO-PFIZER INC-2021222191

PATIENT
  Age: 15 Year
  Sex: Female

DRUGS (1)
  1. ENBREL [Suspect]
     Active Substance: ETANERCEPT
     Indication: Juvenile idiopathic arthritis
     Dosage: 50 MG, UNSPECIFIED FRECUENCY
     Route: 058
     Dates: start: 201910

REACTIONS (3)
  - Systemic lupus erythematosus [Recovering/Resolving]
  - Intentional product misuse [Unknown]
  - Rash [Unknown]

NARRATIVE: CASE EVENT DATE: 20201227
